FAERS Safety Report 26048134 (Version 1)
Quarter: 2025Q4

REPORT INFORMATION
  Report Type: Spontaneous
  Country: BR (occurrence: BR)
  Receive Date: 20251114
  Receipt Date: 20251114
  Transmission Date: 20260117
  Serious: Yes (Other)
  Sender: BIOGEN
  Company Number: BR-BIOGEN-2090256

PATIENT
  Sex: Female
  Weight: 63 kg

DRUGS (8)
  1. AVONEX [Suspect]
     Active Substance: INTERFERON BETA-1A
     Indication: Multiple sclerosis
     Dosage: STOP DATE IN 2020 OR 2021
  2. AVONEX [Suspect]
     Active Substance: INTERFERON BETA-1A
  3. AVONEX [Suspect]
     Active Substance: INTERFERON BETA-1A
  4. AVONEX [Suspect]
     Active Substance: INTERFERON BETA-1A
  5. ZOLPIDEM [Suspect]
     Active Substance: ZOLPIDEM TARTRATE
     Indication: Insomnia
  6. ZOLPIDEM [Suspect]
     Active Substance: ZOLPIDEM TARTRATE
     Route: 048
  7. Tamisa (Gestodene + Ethinylestradiol) [Concomitant]
     Indication: Contraception
     Dosage: 75MCG + 30MCG
  8. MELATONIN [Concomitant]
     Active Substance: MELATONIN
     Indication: Sleep disorder
     Dosage: DOSE NOT ASKED

REACTIONS (5)
  - Drug withdrawal convulsions [Unknown]
  - Sleep deficit [Unknown]
  - Anxiety [Unknown]
  - Off label use [Unknown]
  - Depression [Unknown]
